FAERS Safety Report 17362342 (Version 10)
Quarter: 2025Q3

REPORT INFORMATION
  Report Type: Report from Study
  Country: US (occurrence: US)
  Receive Date: 20200203
  Receipt Date: 20250725
  Transmission Date: 20251020
  Serious: Yes (Hospitalization, Other)
  Sender: TAKEDA
  Company Number: US-SHIRE-US202003413

PATIENT
  Age: 64 Year
  Sex: Female
  Weight: 72 kg

DRUGS (48)
  1. HUMAN IMMUNOGLOBULIN G [Suspect]
     Active Substance: HUMAN IMMUNOGLOBULIN G
     Indication: Immunodeficiency common variable
     Dosage: 9 GRAM, 1/WEEK
     Dates: start: 20170906
  2. HUMAN IMMUNOGLOBULIN G [Suspect]
     Active Substance: HUMAN IMMUNOGLOBULIN G
     Dosage: 9 GRAM, 1/WEEK
     Dates: start: 20210424
  3. HUMAN IMMUNOGLOBULIN G [Suspect]
     Active Substance: HUMAN IMMUNOGLOBULIN G
     Dosage: 10 GRAM, 1/WEEK
  4. GAMMAGARD LIQUID [Suspect]
     Active Substance: HUMAN IMMUNOGLOBULIN G
     Indication: Immunodeficiency common variable
     Dosage: 10 GRAM,1/WEEK
     Dates: start: 20181115
  5. GAMMAGARD LIQUID [Suspect]
     Active Substance: HUMAN IMMUNOGLOBULIN G
     Dosage: 10 GRAM,1/WEEK
     Dates: start: 20181117
  6. GAMMAGARD LIQUID [Suspect]
     Active Substance: HUMAN IMMUNOGLOBULIN G
     Dosage: 10 GRAM,1/WEEK
     Dates: start: 20180501
  7. LETROZOLE [Concomitant]
     Active Substance: LETROZOLE
  8. ACETAMINOPHEN [Concomitant]
     Active Substance: ACETAMINOPHEN
  9. DIPHENHYDRAMINE [Concomitant]
     Active Substance: DIPHENHYDRAMINE
  10. LIDOCAINE HYDROCHLORIDE [Concomitant]
     Active Substance: LIDOCAINE HYDROCHLORIDE
  11. EPINEPHRINE [Concomitant]
     Active Substance: EPINEPHRINE
  12. XYZAL [Concomitant]
     Active Substance: LEVOCETIRIZINE DIHYDROCHLORIDE
  13. ZANTAC [Concomitant]
     Active Substance: RANITIDINE HYDROCHLORIDE
  14. BUSPIRONE [Concomitant]
     Active Substance: BUSPIRONE HYDROCHLORIDE
  15. ASPIRIN [Concomitant]
     Active Substance: ASPIRIN
  16. FLONASE [Concomitant]
     Active Substance: FLUTICASONE PROPIONATE
  17. CLINDAMYCIN [Concomitant]
     Active Substance: CLINDAMYCIN
  18. NASONEX [Concomitant]
     Active Substance: MOMETASONE FUROATE
  19. FERROUS GLUCONATE [Concomitant]
     Active Substance: FERROUS GLUCONATE
  20. VITAMIN D3 [Concomitant]
     Active Substance: CHOLECALCIFEROL
  21. CARAFATE [Concomitant]
     Active Substance: SUCRALFATE
  22. AZELASTINE [Concomitant]
     Active Substance: AZELASTINE
  23. ATENOLOL [Concomitant]
     Active Substance: ATENOLOL
  24. LEVOFLOXACIN [Concomitant]
     Active Substance: LEVOFLOXACIN
  25. CLARITIN [Concomitant]
     Active Substance: LORATADINE
  26. SODIUM CHLORIDE [Concomitant]
     Active Substance: SODIUM CHLORIDE
  27. GLASSIA [Concomitant]
     Active Substance: .ALPHA.1-PROTEINASE INHIBITOR HUMAN
  28. ZOFRAN [Concomitant]
     Active Substance: ONDANSETRON HYDROCHLORIDE
  29. LANTUS [Concomitant]
     Active Substance: INSULIN GLARGINE
  30. SERTRALINE [Concomitant]
     Active Substance: SERTRALINE HYDROCHLORIDE
  31. TORSEMIDE [Concomitant]
     Active Substance: TORSEMIDE
  32. SPIRIVA [Concomitant]
     Active Substance: TIOTROPIUM BROMIDE MONOHYDRATE
  33. METFORMIN [Concomitant]
     Active Substance: METFORMIN HYDROCHLORIDE
  34. OXYGEN [Concomitant]
     Active Substance: OXYGEN
  35. ALBUTEROL [Concomitant]
     Active Substance: ALBUTEROL
  36. ATORVASTATIN [Concomitant]
     Active Substance: ATORVASTATIN
  37. SYMBICORT [Concomitant]
     Active Substance: BUDESONIDE\FORMOTEROL FUMARATE DIHYDRATE
  38. FLUTICASONE PROPIONATE [Concomitant]
     Active Substance: FLUTICASONE PROPIONATE
  39. GABAPENTIN [Concomitant]
     Active Substance: GABAPENTIN
  40. ASPIRIN [Concomitant]
     Active Substance: ASPIRIN
  41. FAMOTIDINE [Concomitant]
     Active Substance: FAMOTIDINE
  42. CALCIUM ASCORBATE;COLECALCIFEROL;CYANOCOBALAMIN;DL-SELENOMETHIONINE;FO [Concomitant]
  43. Calcium plus Vitamin D Knochenfit [Concomitant]
  44. OMEPRAZOLE [Concomitant]
     Active Substance: OMEPRAZOLE
  45. BUSPIRONE HCL [Concomitant]
     Active Substance: BUSPIRONE HYDROCHLORIDE
  46. VITAMIN C [Concomitant]
     Active Substance: ASCORBIC ACID
  47. VITAMIN D3 [Concomitant]
     Active Substance: CHOLECALCIFEROL
  48. DIPHENHYDRAMINE HYDROCHLORIDE [Concomitant]
     Active Substance: DIPHENHYDRAMINE HYDROCHLORIDE

REACTIONS (9)
  - Breast cancer [Unknown]
  - Cataract [Unknown]
  - Abdominal pain upper [Unknown]
  - COVID-19 [Unknown]
  - Weight decreased [Unknown]
  - Post procedural complication [Unknown]
  - Incorrect drug administration rate [Unknown]
  - Sinusitis [Unknown]
  - Upper respiratory tract infection [Unknown]

NARRATIVE: CASE EVENT DATE: 20210520
